FAERS Safety Report 4688157-9 (Version None)
Quarter: 2005Q2

REPORT INFORMATION
  Report Type: 
  Country: None (occurrence: None)
  Receive Date: 20050610
  Receipt Date: 20050422
  Transmission Date: 20051028
  Serious: Yes (Other)
  Sender: FDA-Public Use
  Company Number: PHEH2005US04690

PATIENT
  Age: 73 Year
  Sex: Male
  Weight: 64 kg

DRUGS (18)
  1. ZOMETA [Suspect]
     Indication: MULTIPLE MYELOMA
     Dosage: 4MG Q4WK
     Route: 042
     Dates: start: 20020917, end: 20050315
  2. VINCRISTINE [Concomitant]
     Dosage: 7MG IVP Q3WKS
     Dates: start: 20021118, end: 20030106
  3. CYTOXAN [Concomitant]
     Dosage: 600 MG IVPB Q3WKS
     Dates: start: 20021118, end: 20030106
  4. CYTOXAN [Concomitant]
     Dosage: 1000 MG  IVPB Q3WKS
     Dates: start: 20040601, end: 20040625
  5. HYTRIN [Concomitant]
  6. LOPRESSOR [Concomitant]
     Indication: HYPERTENSION
     Dosage: 50 MG, BID
     Dates: start: 20020910
  7. MONOPRIL [Concomitant]
     Indication: HYPERTENSION
     Dosage: 20 MG, BID
     Dates: start: 20020910
  8. ARANESP [Concomitant]
     Dosage: 400 UNK
  9. ISORDIL [Concomitant]
     Indication: ANGINA UNSTABLE
     Dosage: 3 TID
     Route: 048
     Dates: start: 20020910
  10. MELPHALAN [Concomitant]
     Dosage: 6 MG, BID
     Dates: start: 20021209, end: 20021212
  11. MELPHALAN [Concomitant]
     Dosage: 14 MG, QD
     Dates: start: 20030106, end: 20030109
  12. BCNU [Concomitant]
     Dosage: 25 MG IVPB Q3WKS
     Dates: start: 20021118, end: 20030106
  13. PREDNISONE TAB [Concomitant]
     Dosage: 100 MG, QD
     Dates: start: 20021118, end: 20021201
  14. PREDNISONE TAB [Concomitant]
     Dosage: 60 MG, QD
     Dates: start: 20030106, end: 20030119
  15. IPRATROPIUM BROMIDE W/SALBUTAMOL [Concomitant]
     Dosage: 2 PUFFS BID
     Dates: start: 20020910
  16. LORTAB [Concomitant]
     Indication: PAIN
     Dosage: 10/650 QID/ PRN
     Dates: start: 20040621
  17. TERAZOSIN [Concomitant]
     Indication: BENIGN PROSTATIC HYPERPLASIA
     Dosage: 5 MG, QHS
     Dates: start: 20020910
  18. PROTONIX ^WYETH-AYERST^ [Concomitant]
     Indication: GASTROOESOPHAGEAL REFLUX DISEASE
     Dosage: 40 MG, QD
     Dates: start: 20031016

REACTIONS (15)
  - ASEPTIC NECROSIS BONE [None]
  - BONE DISORDER [None]
  - DENTAL CARIES [None]
  - GINGIVITIS [None]
  - MALIGNANT NEOPLASM PROGRESSION [None]
  - MULTIPLE MYELOMA [None]
  - OSTEOMYELITIS [None]
  - OSTEONECROSIS [None]
  - PAIN IN JAW [None]
  - PERIODONTITIS [None]
  - SEQUESTRECTOMY [None]
  - SINUSITIS [None]
  - TOOTH EXTRACTION [None]
  - TOOTHACHE [None]
  - WOUND DEBRIDEMENT [None]
